FAERS Safety Report 25878007 (Version 1)
Quarter: 2025Q4

REPORT INFORMATION
  Report Type: Spontaneous
  Country: PR (occurrence: None)
  Receive Date: 20251002
  Receipt Date: 20251002
  Transmission Date: 20260118
  Serious: Yes (Hospitalization)
  Sender: FDA-CTU
  Company Number: None

PATIENT
  Age: 67 Year
  Sex: Female

DRUGS (12)
  1. ERIVEDGE [Suspect]
     Active Substance: VISMODEGIB
     Indication: Basal cell carcinoma
     Dosage: FREQUENCY : DAILY;?
     Route: 048
     Dates: start: 20240812, end: 20250911
  2. CILOSTAZOL [Concomitant]
     Active Substance: CILOSTAZOL
  3. HYDROCHLOROTHIAZIDE [Concomitant]
     Active Substance: HYDROCHLOROTHIAZIDE
  4. INSULIN LISPRO 100U/ML KWIKPEN 3M [Concomitant]
  5. METOPROLOL SUCCINATE [Concomitant]
     Active Substance: METOPROLOL SUCCINATE
  6. PANTOPRAZOLE [Concomitant]
     Active Substance: PANTOPRAZOLE
  7. GABAPENTIN [Concomitant]
     Active Substance: GABAPENTIN
  8. LANTUS SOLOSTAR PEN INJ 3ML [Concomitant]
  9. LISINOPRIL [Concomitant]
     Active Substance: LISINOPRIL
  10. METFORMIN HYDROCHLORIDE [Concomitant]
     Active Substance: METFORMIN HYDROCHLORIDE
  11. SIMVASTATIN [Concomitant]
     Active Substance: SIMVASTATIN
  12. SYNTHROID [Concomitant]
     Active Substance: LEVOTHYROXINE SODIUM

REACTIONS (3)
  - Blood pressure decreased [None]
  - Heart rate decreased [None]
  - Dizziness [None]

NARRATIVE: CASE EVENT DATE: 20250911
